FAERS Safety Report 4913822-5 (Version None)
Quarter: 2006Q1

REPORT INFORMATION
  Report Type: 
  Country: None (occurrence: None)
  Receive Date: 20060216
  Receipt Date: 20060208
  Transmission Date: 20060701
  Serious: Yes (Hospitalization, Other)
  Sender: FDA-Public Use
  Company Number: FR-BRISTOL-MYERS SQUIBB COMPANY-13278080

PATIENT
  Age: 41 Year
  Sex: Male
  Weight: 59 kg

DRUGS (5)
  1. REYATAZ [Suspect]
     Indication: HIV INFECTION
     Dates: start: 20050831
  2. VIDEX EC [Suspect]
     Indication: HIV INFECTION
     Route: 048
     Dates: start: 20050831
  3. RETROVIR [Suspect]
     Indication: HIV INFECTION
     Dates: start: 20050831
  4. EPIVIR [Suspect]
     Indication: HIV INFECTION
     Dates: start: 20050831
  5. PENTACARINAT [Concomitant]
     Route: 055

REACTIONS (7)
  - ABDOMINAL PAIN [None]
  - ANOREXIA [None]
  - BLOOD CREATINE PHOSPHOKINASE INCREASED [None]
  - HYPERBILIRUBINAEMIA [None]
  - MYALGIA [None]
  - NEUROPATHY PERIPHERAL [None]
  - THROMBOCYTOPENIA [None]
